FAERS Safety Report 6543082-3 (Version None)
Quarter: 2010Q1

REPORT INFORMATION
  Report Type: 
  Country: None (occurrence: None)
  Receive Date: 20100120
  Receipt Date: 20100107
  Transmission Date: 20100710
  Serious: Yes (Other)
  Sender: FDA-Public Use
  Company Number: PHEH2007US11263

PATIENT
  Sex: Female
  Weight: 54.422 kg

DRUGS (15)
  1. AREDIA [Suspect]
     Dates: start: 19961101, end: 20050101
  2. ZOMETA [Suspect]
     Dosage: UNK
     Dates: start: 20030601, end: 20051101
  3. FOSAMAX [Suspect]
     Dates: start: 19950101
  4. PROZAC [Concomitant]
  5. TAMOXIFEN CITRATE [Concomitant]
  6. NEURONTIN [Concomitant]
  7. LORTAB [Concomitant]
  8. CALCIUM [Concomitant]
  9. VITAMIN B COMPLEX CAP [Concomitant]
  10. ASPIRIN [Concomitant]
  11. AMBIEN [Concomitant]
  12. IMITREX ^CERENEX^ [Concomitant]
  13. DIFLUCAN [Concomitant]
  14. ACETAMINOPHEN AND HYDROCODONE BITARTRATE [Concomitant]
  15. ERYTHROMYCIN [Concomitant]

REACTIONS (18)
  - APPENDICECTOMY [None]
  - BONE DISORDER [None]
  - DENTAL CARIES [None]
  - EMOTIONAL DISTRESS [None]
  - ENDODONTIC PROCEDURE [None]
  - IMPAIRED HEALING [None]
  - INFECTION [None]
  - INJURY [None]
  - LOOSE TOOTH [None]
  - OSTEONECROSIS [None]
  - PAIN [None]
  - SURGERY [None]
  - SWELLING [None]
  - TOOTH ABSCESS [None]
  - TOOTH DISORDER [None]
  - TOOTH EXTRACTION [None]
  - TOOTHACHE [None]
  - WOUND SECRETION [None]
